FAERS Safety Report 8242819-5 (Version None)
Quarter: 2012Q1

REPORT INFORMATION
  Report Type: 
  Country: None (occurrence: None)
  Receive Date: 20120329
  Receipt Date: 20120327
  Transmission Date: 20120608
  Serious: Yes (Life-Threatening)
  Sender: FDA-Public Use
  Company Number: GXKR2012DE001311

PATIENT

DRUGS (5)
  1. PRILOCAINE HYDROCHLORIDE [Concomitant]
     Indication: ANAESTHESIA
     Dosage: 20 ML, UNK
     Dates: start: 20111010
  2. DORMICUM ROCHE [Concomitant]
     Indication: ANXIOLYTIC THERAPY
     Dosage: 1 MG, UNK
     Route: 042
     Dates: start: 20111010
  3. BUPIVACAINE HCL [Concomitant]
  4. CEFTRIAXONE [Suspect]
     Indication: INFECTION PROPHYLAXIS
     Dosage: 2 G, UNK
     Route: 042
     Dates: start: 20111010, end: 20111010
  5. BUPIVACAINE HCL [Concomitant]
     Indication: ANAESTHESIA
     Dosage: 20 ML, UNK
     Dates: start: 20111010

REACTIONS (4)
  - SWELLING [None]
  - COUGH [None]
  - SNEEZING [None]
  - DYSPNOEA [None]
